FAERS Safety Report 26094164 (Version 1)
Quarter: 2025Q4

REPORT INFORMATION
  Report Type: Report from Study
  Country: EU (occurrence: EU)
  Receive Date: 20251126
  Receipt Date: 20251126
  Transmission Date: 20260117
  Serious: Yes (Other)
  Sender: MYLAN
  Company Number: EU-ROCHE-10000330570

PATIENT
  Age: 62 Year
  Sex: Female

DRUGS (19)
  1. PREDNISONE [Suspect]
     Active Substance: PREDNISONE
     Indication: Diffuse large B-cell lymphoma
     Dosage: 500 MILLIGRAM, Q21D (THE MOST RECENT DOSE OF THE PREDNISONE PRIOR TO EVENT 17-JAN-2025, DOSE 100 MG.DAY 1 TO DAY 5 OF EACH CYCLE (EVERY 21 DAY))
     Dates: start: 20240925
  2. POLATUZUMAB VEDOTIN [Suspect]
     Active Substance: POLATUZUMAB VEDOTIN
     Indication: Diffuse large B-cell lymphoma
     Dosage: 142.2 MILLIGRAM, Q21D (THE MOST RECENT DOSE OF THE POLATUZUMAB VEDOTIN PRIOR TO EVENT 13-JAN-2025, DOSE 118.8 MG)
     Dates: start: 20240925
  3. RITUXIMAB [Suspect]
     Active Substance: RITUXIMAB
     Indication: Diffuse large B-cell lymphoma
     Dosage: 700 MILLIGRAM, Q21D (THE MOST RECENT DOSE OF THE RITUXIMAB PRIOR TO EVENT 05-FEB-2025, DOSE 650 MG, PATIENT RECEIVED BIOSIMILAR)
     Dates: start: 20240925
  4. CYCLOPHOSPHAMIDE [Suspect]
     Active Substance: CYCLOPHOSPHAMIDE
     Indication: Diffuse large B-cell lymphoma
     Dosage: 1400 MILLIGRAM, Q21D (THE MOST RECENT DOSE OF THE CYCLOPHOSPHAMIDE PRIOR TO EVENT 13-JAN-2025, DOSE 1282.5 MG.)
     Dates: start: 20240925
  5. DOXORUBICIN [Suspect]
     Active Substance: DOXORUBICIN
     Indication: Diffuse large B-cell lymphoma
     Dosage: 85 MILLIGRAM, Q21D (THE MOST RECENT DOSE OF THE DOXORUBICIN PRIOR TO EVENT 13-JAN-2025, DOSE 85.5 MG.)
     Dates: start: 20240925
  6. ACYCLOVIR [Concomitant]
     Active Substance: ACYCLOVIR
     Dosage: 400 MILLIGRAM, QD (1 TABLET)
     Dates: start: 20240925
  7. ALLOPURINOL [Concomitant]
     Active Substance: ALLOPURINOL
     Dosage: 300 MILLIGRAM, QD
     Dates: start: 20240924
  8. PANTOPRAZOLE [Concomitant]
     Active Substance: PANTOPRAZOLE
     Dosage: 40 MILLIGRAM, QD (1 TABLET DAILY)
     Dates: start: 202410
  9. ENTECAVIR [Concomitant]
     Active Substance: ENTECAVIR
     Dosage: 0.5 MILLIGRAM, QD (1 TABLET)
     Dates: start: 202409
  10. BACTRIM [Concomitant]
     Active Substance: SULFAMETHOXAZOLE\TRIMETHOPRIM
     Dosage: UNK, QD (160 MG PLUS 800 MG 1 TABLET)
     Dates: start: 20240925
  11. MYCOSTATIN [Concomitant]
     Active Substance: NYSTATIN
     Dosage: UNK, QID (1 SPOON/ 4 TIMES A DAY 4 TABLESPOON  )
     Dates: start: 202410
  12. ENOXAPARIN SODIUM [Concomitant]
     Active Substance: ENOXAPARIN SODIUM
     Dosage: 6000 INTERNATIONAL UNIT (UNK (6000 UI 1 OTHER VIAL))
  13. ERYTHROPOIETIN [Concomitant]
     Active Substance: ERYTHROPOIETIN
     Dosage: UNK (40000 1 OTHER VIAL)
  14. FILGRASTIM [Concomitant]
     Active Substance: FILGRASTIM
     Dosage: UNK (1 VIAL 1 OTHER)
  15. NEBIVOLOL [Concomitant]
     Active Substance: NEBIVOLOL
     Dosage: UNK
  16. VALSARTAN [Concomitant]
     Active Substance: VALSARTAN
     Dosage: UNK
  17. METOCLOPRAMIDE HYDROCHLORIDE [Concomitant]
     Active Substance: METOCLOPRAMIDE HYDROCHLORIDE
     Dosage: UNK (10 MG 30 MG TABLET)
     Dates: start: 20241112, end: 20250212
  18. POTASSIUM CHLORIDE [Concomitant]
     Active Substance: POTASSIUM CHLORIDE
     Dosage: 600 MILLIGRAM (3 CAPSULE)
     Dates: start: 20241118, end: 20250212
  19. METHOTREXATE [Concomitant]
     Active Substance: METHOTREXATE
     Dosage: 850 MILLIGRAM

REACTIONS (2)
  - Neutropenia [Recovered/Resolved]
  - Thrombocytopenia [Recovered/Resolved]

NARRATIVE: CASE EVENT DATE: 20250217
